FAERS Safety Report 26147375 (Version 1)
Quarter: 2025Q4

REPORT INFORMATION
  Report Type: Spontaneous
  Country: AU (occurrence: AU)
  Receive Date: 20251211
  Receipt Date: 20251211
  Transmission Date: 20260117
  Serious: Yes (Hospitalization, Other)
  Sender: PURDUE
  Company Number: AU-PURDUE-USA-2025-0322874

PATIENT
  Age: 87 Year
  Sex: Male

DRUGS (13)
  1. OXYCODONE HYDROCHLORIDE [Suspect]
     Active Substance: OXYCODONE HYDROCHLORIDE
     Indication: Product used for unknown indication
     Dosage: DOSE: 2.5 MILLIGRAM; ROUTE OF ADMINISTRATION: INFORMATION NOT PROVIDED BY SPONSOR
     Route: 065
     Dates: start: 201702, end: 201708
  2. ASPIRIN [Suspect]
     Active Substance: ASPIRIN
     Indication: Product used for unknown indication
     Dosage: DOSE: 100 MILLIGRAM; ROUTE OF ADMINISTRATION: INFORMATION NOT PROVIDED BY SPONSOR
     Route: 065
     Dates: start: 201611, end: 201708
  3. ALLOPURINOL [Suspect]
     Active Substance: ALLOPURINOL
     Indication: Product used for unknown indication
     Dosage: DOSE: 300 MILLIGRAM; ROUTE OF ADMINISTRATION: INFORMATION NOT PROVIDED BY SPONSOR
     Route: 065
     Dates: start: 201611, end: 201702
  4. ATORVASTATIN [Suspect]
     Active Substance: ATORVASTATIN
     Indication: Product used for unknown indication
     Dosage: DOSE: 10 MILLIGRAM; ROUTE OF ADMINISTRATION: INFORMATION NOT PROVIDED BY SPONSOR
     Route: 065
     Dates: start: 201611
  5. BUPRENORPHINE HYDROCHLORIDE [Suspect]
     Active Substance: BUPRENORPHINE HYDROCHLORIDE
     Indication: Product used for unknown indication
     Dosage: DOSE: 5 MILLIGRAM; ROUTE OF ADMINISTRATION: INFORMATION NOT PROVIDED BY SPONSOR
     Route: 065
     Dates: start: 201708
  6. MIRTAZAPINE [Suspect]
     Active Substance: MIRTAZAPINE
     Indication: Product used for unknown indication
     Dosage: DOSE: 15 MILLIGRAM; ROUTE OF ADMINISTRATION: INFORMATION NOT PROVIDED BY SPONSOR
     Route: 065
     Dates: start: 201611, end: 201708
  7. ACETAMINOPHEN [Suspect]
     Active Substance: ACETAMINOPHEN
     Indication: Product used for unknown indication
     Dosage: DOSE: 500 MILLIGRAM; ROUTE OF ADMINISTRATION: INFORMATION NOT PROVIDED BY SPONSOR
     Route: 065
     Dates: start: 201611, end: 201708
  8. PERINDOPRIL [Suspect]
     Active Substance: PERINDOPRIL
     Indication: Product used for unknown indication
     Dosage: DOSE: 8 MILLIGRAM; ROUTE OF ADMINISTRATION: INFORMATION NOT PROVIDED BY SPONSOR
     Route: 065
     Dates: start: 201611, end: 201702
  9. VALPROATE SODIUM [Suspect]
     Active Substance: VALPROATE SODIUM
     Indication: Product used for unknown indication
     Dosage: UNK
     Route: 065
     Dates: start: 201708
  10. VALPROATE SODIUM [Suspect]
     Active Substance: VALPROATE SODIUM
     Dosage: DOSE: 0.25 MILLIGRAM; ROUTE OF ADMINISTRATION: INFORMATION NOT PROVIDED BY SPONSOR
     Route: 065
     Dates: start: 201708
  11. VALPROATE SODIUM [Suspect]
     Active Substance: VALPROATE SODIUM
     Dosage: DOSE: 0.5 MILLIGRAM; ROUTE OF ADMINISTRATION: INFORMATION NOT PROVIDED BY SPONSOR
     Route: 065
     Dates: start: 201708
  12. THIAMINE HYDROCHLORIDE [Suspect]
     Active Substance: THIAMINE HYDROCHLORIDE
     Indication: Product used for unknown indication
     Dosage: DOSE: 100 MILLIGRAM; ROUTE OF ADMINISTRATION: INFORMATION NOT PROVIDED BY SPONSOR
     Route: 065
     Dates: start: 201611, end: 201708
  13. TIOTROPIUM BROMIDE [Suspect]
     Active Substance: TIOTROPIUM BROMIDE
     Indication: Product used for unknown indication
     Dosage: DOSE: 18 MICROGRAM; ROUTE OF ADMINISTRATION: INFORMATION NOT PROVIDED BY SPONSOR
     Route: 065
     Dates: start: 201611, end: 201708

REACTIONS (27)
  - Sepsis [Recovered/Resolved]
  - Seizure [Unknown]
  - Rib fracture [Recovered/Resolved]
  - Fall [Recovered/Resolved]
  - Depression [Recovered/Resolved]
  - Muscle atrophy [Recovered/Resolved]
  - Cachexia [Recovered/Resolved]
  - Dystonia [Recovered/Resolved]
  - Tardive dyskinesia [Recovered/Resolved]
  - Hallucination [Recovered/Resolved]
  - Cerebellar ataxia [Recovered/Resolved]
  - Condition aggravated [Recovered/Resolved]
  - Condition aggravated [Recovered/Resolved]
  - Delirium [Recovered/Resolved]
  - Dementia with Lewy bodies [Recovered/Resolved]
  - Depressed level of consciousness [Recovered/Resolved]
  - Dizziness postural [Recovered/Resolved]
  - Dyspnoea [Recovered/Resolved]
  - Dysstasia [Recovered/Resolved]
  - Ecchymosis [Recovered/Resolved]
  - Hunger [Recovered/Resolved]
  - Ligament sprain [Recovered/Resolved]
  - Living alone [Recovered/Resolved]
  - Malnutrition [Recovered/Resolved]
  - Muscle contracture [Recovered/Resolved]
  - Urinary tract infection [Recovered/Resolved]
  - Weight decreased [Recovered/Resolved]

NARRATIVE: CASE EVENT DATE: 20161101
